FAERS Safety Report 10413311 (Version 1)
Quarter: 2014Q3

REPORT INFORMATION
  Report Type: Spontaneous
  Country: GB (occurrence: GB)
  Receive Date: 20140827
  Receipt Date: 20140827
  Transmission Date: 20150326
  Serious: Yes (Other)
  Sender: FDA-Public Use
  Company Number: PHHY2014GB104852

PATIENT
  Age: 44 Year
  Sex: Female

DRUGS (2)
  1. HORMONES NOS [Concomitant]
     Active Substance: UNSPECIFIED INGREDIENT
     Route: 061
  2. COCODAMOL [Suspect]
     Active Substance: ACETAMINOPHEN\CODEINE PHOSPHATE
     Indication: HEADACHE
     Dosage: 2 DF
     Route: 048
     Dates: start: 20140809, end: 20140809

REACTIONS (6)
  - Visual impairment [Recovered/Resolved]
  - Muscular weakness [Recovered/Resolved]
  - Balance disorder [Recovered/Resolved]
  - Eye disorder [Recovered/Resolved]
  - Paraesthesia [Recovered/Resolved]
  - Dizziness [Recovered/Resolved]

NARRATIVE: CASE EVENT DATE: 20140809
